FAERS Safety Report 5405666-5 (Version None)
Quarter: 2007Q3

REPORT INFORMATION
  Report Type: 
  Country: None (occurrence: None)
  Receive Date: 20070806
  Receipt Date: 20070725
  Transmission Date: 20080115
  Serious: Yes (Other)
  Sender: FDA-Public Use
  Company Number: PHNR2007AU01371

PATIENT
  Age: 39 Year
  Sex: Male

DRUGS (8)
  1. CLOZARIL [Suspect]
     Indication: SCHIZOPHRENIA
     Dosage: 75 MG - 400 MG DAILY
     Route: 048
     Dates: start: 20051125, end: 20070203
  2. CLOZARIL [Suspect]
     Dosage: 175 MG - 400 MG DAILY
     Route: 048
     Dates: start: 20070209, end: 20070311
  3. CLOZARIL [Suspect]
     Dosage: 25 MG - 700 MG DAILY
     Route: 048
     Dates: start: 20070330, end: 20070701
  4. CLOZARIL [Suspect]
     Dosage: 12.5 MG
     Route: 048
     Dates: start: 20070707, end: 20070708
  5. CLOZARIL [Suspect]
     Dosage: 300 MG MORNING + 500 MG AT NIGHT
     Route: 048
     Dates: start: 20070701, end: 20070707
  6. CLOZARIL [Suspect]
     Route: 048
     Dates: start: 20070721
  7. VALPROATE SODIUM [Concomitant]
     Dosage: 1250 MG, BID
     Dates: start: 20070613
  8. ESOMEPRAZOLE MAGNESIUM [Concomitant]
     Dosage: 40 MG, QD
     Dates: start: 20070301

REACTIONS (12)
  - BLOOD CREATINE PHOSPHOKINASE INCREASED [None]
  - CARDIAC ENZYMES INCREASED [None]
  - CHEST DISCOMFORT [None]
  - DYSPNOEA [None]
  - EOSINOPHIL COUNT INCREASED [None]
  - EOSINOPHILIA [None]
  - MONOCYTE COUNT INCREASED [None]
  - MONOCYTOSIS [None]
  - PLATELET COUNT DECREASED [None]
  - THROMBOCYTOPENIA [None]
  - TREATMENT NONCOMPLIANCE [None]
  - TROPONIN I INCREASED [None]
